FAERS Safety Report 16805433 (Version 1)
Quarter: 2019Q3

REPORT INFORMATION
  Report Type: Spontaneous
  Country: JP (occurrence: JP)
  Receive Date: 20190913
  Receipt Date: 20190913
  Transmission Date: 20191005
  Serious: Yes (Other)
  Sender: FDA-Public Use
  Company Number: JP-ASTRAZENECA-2019SF28911

PATIENT
  Age: 57 Year
  Sex: Female

DRUGS (2)
  1. VERZENIO [Suspect]
     Active Substance: ABEMACICLIB
     Route: 048
     Dates: end: 20190904
  2. FASLODEX [Suspect]
     Active Substance: FULVESTRANT
     Indication: BREAST CANCER FEMALE
     Dosage: 500.0MG UNKNOWN
     Route: 030
     Dates: start: 20190821, end: 20190904

REACTIONS (2)
  - Rash [Not Recovered/Not Resolved]
  - Metastases to pleura [Unknown]

NARRATIVE: CASE EVENT DATE: 20190904
